FAERS Safety Report 24810407 (Version 1)
Quarter: 2025Q1

REPORT INFORMATION
  Report Type: Spontaneous
  Country: FR (occurrence: FR)
  Receive Date: 20250106
  Receipt Date: 20250106
  Transmission Date: 20250408
  Serious: Yes (Hospitalization)
  Sender: PFIZER
  Company Number: None

PATIENT
  Age: 70 Year
  Sex: Male
  Weight: 78 kg

DRUGS (23)
  1. CYTARABINE [Suspect]
     Active Substance: CYTARABINE
     Indication: Acute myeloid leukaemia
     Dosage: 390MG  FROM DAY1 TO DAY7
     Route: 042
     Dates: start: 20241119, end: 20241125
  2. IDARUBICIN HYDROCHLORIDE [Concomitant]
     Active Substance: IDARUBICIN HYDROCHLORIDE
     Indication: Acute myeloid leukaemia
     Dosage: 23.5 MG FROM DAY1 TO DAY3
     Route: 042
     Dates: start: 20241119, end: 20241121
  3. ONDANSETRON [Concomitant]
     Active Substance: ONDANSETRON
     Indication: Prophylaxis of nausea and vomiting
     Dosage: 8 MG, 1X/DAY
     Route: 048
     Dates: start: 20241119, end: 20241125
  4. SANDOZ METOCLOPRAMIDE HCL [Concomitant]
     Indication: Prophylaxis of nausea and vomiting
     Route: 048
     Dates: start: 20241120
  5. CEFEPIME HYDROCHLORIDE [Concomitant]
     Active Substance: CEFEPIME HYDROCHLORIDE
     Indication: Febrile bone marrow aplasia
     Route: 042
     Dates: start: 20241113, end: 20241113
  6. CEFEPIME HYDROCHLORIDE [Concomitant]
     Active Substance: CEFEPIME HYDROCHLORIDE
     Dosage: 2G/8H CONTINUOUS, IV, AT 8PM FOR 7 DAYS
     Route: 042
     Dates: start: 20241113, end: 20241120
  7. METRONIDAZOLE [Concomitant]
     Active Substance: METRONIDAZOLE
     Indication: Febrile bone marrow aplasia
     Dosage: 1 TABLET MORNING, NOON AND NIGHT
     Route: 048
     Dates: start: 20241113, end: 20241120
  8. NOXAFIL [Concomitant]
     Active Substance: POSACONAZOLE
     Indication: Prophylactic chemotherapy
     Dosage: 300 MG IN THE EVENING
     Route: 048
     Dates: start: 20241114, end: 20241202
  9. PRAVASTATIN SODIUM [Concomitant]
     Active Substance: PRAVASTATIN SODIUM
     Dosage: 1 TABLET IN THE EVENING FOR 1 MONTH
     Route: 048
     Dates: start: 20241114
  10. INDAPAMIDE\PERINDOPRIL ERBUMINE [Concomitant]
     Active Substance: INDAPAMIDE\PERINDOPRIL ERBUMINE
     Indication: Hypertension
     Dosage: 1 TABLET IN THE MORNING
     Route: 048
  11. EZETIMIBE [Concomitant]
     Active Substance: EZETIMIBE
     Dosage: 1 TABLET IN THE EVENING
     Route: 048
  12. AMIODARONE [Concomitant]
     Active Substance: AMIODARONE
     Indication: Atrial fibrillation
     Dosage: 1 TABLET EVERY MONDAY, WEDNESDAY AND FRIDAY
     Route: 048
     Dates: end: 20241121
  13. PANTOPRAZOLE [Concomitant]
     Active Substance: PANTOPRAZOLE
     Indication: Gastrooesophageal reflux disease
     Dosage: 1 TABLET IN THE EVENING
     Route: 048
     Dates: start: 20241114
  14. SODIUM ALGINATE\SODIUM BICARBONATE [Concomitant]
     Active Substance: SODIUM ALGINATE\SODIUM BICARBONATE
     Indication: Gastrooesophageal reflux disease
     Dosage: 1 SACHET MORNING, NOON AND NIGHT
     Route: 048
  15. PROPRANOLOL [Concomitant]
     Active Substance: PROPRANOLOL HYDROCHLORIDE
     Indication: Atrial fibrillation
     Dosage: 1 TABLET IN THE MORNING FOR 1 MONTH
     Route: 048
     Dates: start: 20241119
  16. VALACYCLOVIR HYDROCHLORIDE [Concomitant]
     Active Substance: VALACYCLOVIR HYDROCHLORIDE
     Indication: Herpes simplex
     Dosage: 1 TABLET MORNING AND EVENING
     Route: 048
     Dates: start: 20241113, end: 20241202
  17. VALACYCLOVIR HYDROCHLORIDE [Concomitant]
     Active Substance: VALACYCLOVIR HYDROCHLORIDE
     Indication: Varicella zoster virus infection
  18. NEFOPAM HYDROCHLORIDE [Concomitant]
     Active Substance: NEFOPAM HYDROCHLORIDE
     Indication: Pain
     Dosage: 20 MG, IV, AS NEEDED FOR 1 WEEK; MAX PER 24H: 120MG
     Route: 042
     Dates: start: 20241120
  19. TRAMADOL HYDROCHLORIDE [Concomitant]
     Active Substance: TRAMADOL HYDROCHLORIDE
     Indication: Pain
     Dosage: 1 TABLET IF NEEDED
     Route: 048
     Dates: start: 20241120
  20. PREDNISONE [Concomitant]
     Active Substance: PREDNISONE
     Dosage: 4 TABLETS IN THE MORNING FOR 2 WEEKS
     Route: 048
     Dates: start: 20241123, end: 20241202
  21. VITAMIN K1 [Concomitant]
     Active Substance: PHYTONADIONE
     Indication: Vitamin K deficiency
     Dosage: 1 AMP. MORNING EVERY MONDAYWEDNESDAY AND FRIDAY
     Route: 048
     Dates: start: 20241114
  22. SODIUM BICARBONATE [Concomitant]
     Active Substance: SODIUM BICARBONATE
     Indication: Mucosal inflammation
     Dosage: 1 MOUTHWASH EVERY 4 HOURS - DAILY
     Route: 048
     Dates: start: 20241113
  23. MELATONIN [Concomitant]
     Active Substance: MELATONIN
     Indication: Insomnia
     Dosage: 1 TABLET IN THE EVENING
     Route: 048
     Dates: start: 20241114

REACTIONS (1)
  - Rash maculo-papular [Recovering/Resolving]

NARRATIVE: CASE EVENT DATE: 20241123
